FAERS Safety Report 5413910-3 (Version None)
Quarter: 2007Q3

REPORT INFORMATION
  Report Type: 
  Country: None (occurrence: None)
  Receive Date: 20070814
  Receipt Date: 20070802
  Transmission Date: 20080115
  Serious: Yes (Hospitalization)
  Sender: FDA-Public Use
  Company Number: US-ELI_LILLY_AND_COMPANY-US200706000877

PATIENT
  Age: 83 Year
  Sex: Female

DRUGS (2)
  1. FORTEO [Suspect]
     Indication: OSTEOPOROSIS
     Dates: start: 20070707
  2. FORTEO [Suspect]
     Dosage: UNK D/F, UNKNOWN
     Dates: start: 20060501, end: 20070611

REACTIONS (3)
  - HIP ARTHROPLASTY [None]
  - PAIN IN EXTREMITY [None]
  - WRIST FRACTURE [None]
